FAERS Safety Report 7142676-4 (Version None)
Quarter: 2010Q4

REPORT INFORMATION
  Report Type: 
  Country: None (occurrence: None)
  Receive Date: 20101207
  Receipt Date: 20101201
  Transmission Date: 20110411
  Serious: Yes (Hospitalization, Other)
  Sender: FDA-Public Use
  Company Number: US-RB-006751-10

PATIENT
  Sex: Male

DRUGS (2)
  1. SUBOXONE [Suspect]
     Indication: DRUG DEPENDENCE
     Route: 060
     Dates: start: 20100401
  2. DEPAKOTE [Suspect]
     Indication: MOOD SWINGS
     Dosage: DOSING DETAILS UNKNOWN
     Route: 065
     Dates: end: 20100101

REACTIONS (11)
  - AMMONIA [None]
  - BLOOD GLUCOSE DECREASED [None]
  - CONVULSION [None]
  - DRUG DEPENDENCE [None]
  - DRUG WITHDRAWAL SYNDROME [None]
  - EXCORIATION [None]
  - FALL [None]
  - HYPOACUSIS [None]
  - LOSS OF CONSCIOUSNESS [None]
  - SCAB [None]
  - SKIN LACERATION [None]
